FAERS Safety Report 6213796-3 (Version None)
Quarter: 2009Q2

REPORT INFORMATION
  Report Type: 
  Country: None (occurrence: None)
  Receive Date: 20090602
  Receipt Date: 20090522
  Transmission Date: 20091009
  Serious: Yes (Other)
  Sender: FDA-Public Use
  Company Number: 2009-035

PATIENT

DRUGS (1)
  1. LIDOCAINE [Suspect]
     Indication: ANAESTHESIA
     Dosage: LARYING-O-JET SYRINGE

REACTIONS (2)
  - DEVICE BREAKAGE [None]
  - PROCEDURAL COMPLICATION [None]
